FAERS Safety Report 21665795 (Version 2)
Quarter: 2022Q4

REPORT INFORMATION
  Report Type: Spontaneous
  Country: US (occurrence: US)
  Receive Date: 20221201
  Receipt Date: 20221214
  Transmission Date: 20230113
  Serious: Yes (Death, Other)
  Sender: FDA-Public Use
  Company Number: US-BRISTOL-MYERS SQUIBB COMPANY-2022-145632

PATIENT
  Age: 85 Year
  Sex: Male

DRUGS (2)
  1. REVLIMID [Suspect]
     Active Substance: LENALIDOMIDE
     Indication: Plasma cell myeloma
     Route: 048
     Dates: start: 202211
  2. REVLIMID [Suspect]
     Active Substance: LENALIDOMIDE
     Indication: Chronic myelomonocytic leukaemia

REACTIONS (1)
  - Death [Fatal]

NARRATIVE: CASE EVENT DATE: 20221107
